FAERS Safety Report 12871139 (Version 1)
Quarter: 2016Q4

REPORT INFORMATION
  Report Type: Spontaneous
  Country: US (occurrence: US)
  Receive Date: 20161020
  Receipt Date: 20161020
  Transmission Date: 20170207
  Serious: Yes (Other)
  Sender: FDA-Public Use
  Company Number: None

PATIENT
  Age: 84 Year
  Sex: Male
  Weight: 85.1 kg

DRUGS (1)
  1. LORAZEPAM. [Suspect]
     Active Substance: LORAZEPAM
     Indication: DEMENTIA
     Route: 030
     Dates: start: 20160331, end: 20160407

REACTIONS (6)
  - Patient uncooperative [None]
  - Fall [None]
  - Gait disturbance [None]
  - Condition aggravated [None]
  - Agitation [None]
  - Laceration [None]

NARRATIVE: CASE EVENT DATE: 20160407
